FAERS Safety Report 23769596 (Version 3)
Quarter: 2024Q2

REPORT INFORMATION
  Report Type: Spontaneous
  Country: JP (occurrence: JP)
  Receive Date: 20240422
  Receipt Date: 20240501
  Transmission Date: 20240716
  Serious: Yes (Hospitalization, Other)
  Sender: FDA-Public Use
  Company Number: JP-PFIZER INC-PV202400050962

PATIENT
  Age: 6 Decade
  Sex: Female

DRUGS (1)
  1. INFLIXIMAB [Suspect]
     Active Substance: INFLIXIMAB
     Indication: Crohn^s disease
     Dosage: UNK
     Route: 042

REACTIONS (4)
  - Abdominal distension [Unknown]
  - Pyrexia [Unknown]
  - Enterococcal bacteraemia [Recovering/Resolving]
  - Haematochezia [Recovering/Resolving]
